FAERS Safety Report 18663787 (Version 2)
Quarter: 2021Q3

REPORT INFORMATION
  Report Type: Spontaneous
  Country: DE (occurrence: DE)
  Receive Date: 20201225
  Receipt Date: 20210813
  Transmission Date: 20211014
  Serious: Yes (Hospitalization)
  Sender: FDA-Public Use
  Company Number: DE-AUROBINDO-AUR-APL-2020-062756

PATIENT
  Age: 96 Year
  Sex: Male

DRUGS (3)
  1. METFORMIN [Suspect]
     Active Substance: METFORMIN HYDROCHLORIDE
     Indication: PRODUCT USED FOR UNKNOWN INDICATION
     Dosage: 500 MG, 1?0?1?0, TABLETTEN
     Route: 048
  2. ASS 100 MG TABLET [Suspect]
     Active Substance: ASPIRIN
     Dosage: 100 MILLIGRAM, ONCE A DAY
     Route: 065
  3. IBUPROFEN FILM?COATED TABLETS [Suspect]
     Active Substance: IBUPROFEN
     Indication: PRODUCT USED FOR UNKNOWN INDICATION
     Dosage: 400 MILLIGRAM, ONCE A DAY
     Route: 048

REACTIONS (2)
  - Abdominal pain upper [Recovering/Resolving]
  - Vomiting [Recovering/Resolving]
